FAERS Safety Report 7913537-5 (Version None)
Quarter: 2011Q4

REPORT INFORMATION
  Report Type: 
  Country: None (occurrence: None)
  Receive Date: 20111115
  Receipt Date: 20111103
  Transmission Date: 20120403
  Serious: Yes (Hospitalization)
  Sender: FDA-Public Use
  Company Number: CA-JNJFOC-20111102631

PATIENT
  Age: 64 Year
  Sex: Male
  Weight: 150 kg

DRUGS (5)
  1. REMICADE [Suspect]
     Indication: PSORIASIS
     Dosage: 02NOV2011 5 MG/KG 0910-1110
     Route: 042
     Dates: start: 20111102
  2. ACETAMINOPHEN [Concomitant]
     Indication: PREMEDICATION
     Route: 048
     Dates: start: 20111102, end: 20111102
  3. BENADRYL [Concomitant]
     Indication: PREMEDICATION
     Dosage: FREQUENCY: OD
     Route: 042
     Dates: start: 20111102, end: 20111102
  4. AVAPRO [Concomitant]
     Indication: HYPERTENSION
     Route: 048
     Dates: start: 19970101
  5. METOPROLOL SUCCINATE [Concomitant]
     Indication: HYPERTENSION
     Route: 048
     Dates: start: 19970101

REACTIONS (6)
  - HYPERHIDROSIS [None]
  - INFUSION RELATED REACTION [None]
  - DYSPEPSIA [None]
  - NAUSEA [None]
  - CHEST PAIN [None]
  - CYANOSIS [None]
